FAERS Safety Report 22022565 (Version 2)
Quarter: 2025Q4

REPORT INFORMATION
  Report Type: Report from Study
  Country: US (occurrence: US)
  Receive Date: 20230222
  Receipt Date: 20251005
  Transmission Date: 20260118
  Serious: Yes (Other)
  Sender: NOVARTIS
  Company Number: US-002147023-NVSC2023US037699

PATIENT
  Sex: Female

DRUGS (1)
  1. ENTRESTO [Suspect]
     Active Substance: SACUBITRIL\VALSARTAN
     Indication: Product used for unknown indication
     Dosage: UNK
     Route: 065

REACTIONS (5)
  - Diabetes mellitus [Unknown]
  - COVID-19 [Unknown]
  - Illness [Unknown]
  - Asthenia [Unknown]
  - Cardiac disorder [Unknown]
